FAERS Safety Report 5690790-2 (Version None)
Quarter: 2008Q2

REPORT INFORMATION
  Report Type: 
  Country: None (occurrence: None)
  Receive Date: 20080401
  Receipt Date: 20080328
  Transmission Date: 20081010
  Serious: Yes (Death)
  Sender: FDA-Public Use
  Company Number: A0718423A

PATIENT
  Sex: Male

DRUGS (1)
  1. AVANDIA [Suspect]

REACTIONS (2)
  - DEATH [None]
  - INJURY [None]
